FAERS Safety Report 5417737-8 (Version None)
Quarter: 2007Q3

REPORT INFORMATION
  Report Type: 
  Country: None (occurrence: None)
  Receive Date: 20070815
  Receipt Date: 20070815
  Transmission Date: 20080115
  Serious: Yes (Hospitalization)
  Sender: FDA-Public Use
  Company Number: None

PATIENT
  Sex: Female
  Weight: 58.9676 kg

DRUGS (4)
  1. NOVOLIN 70/30 [Suspect]
     Indication: DIABETES MELLITUS
     Dosage: 19 UNITS IN AM;  17 UNITS IN PM (THERAPY DATES: PRIOR TO ADMISSION)
  2. ATACAND HCT [Concomitant]
  3. CARDIZEM [Concomitant]
  4. FISH OIL [Concomitant]

REACTIONS (2)
  - HYPOGLYCAEMIA [None]
  - MENTAL STATUS CHANGES [None]
